FAERS Safety Report 7611204-9 (Version None)
Quarter: 2011Q3

REPORT INFORMATION
  Report Type: 
  Country: None (occurrence: None)
  Receive Date: 20110715
  Receipt Date: 20110708
  Transmission Date: 20111222
  Serious: Yes (Hospitalization)
  Sender: FDA-Public Use
  Company Number: JP-JNJFOC-20110704639

PATIENT
  Age: 17 Year
  Sex: Male

DRUGS (3)
  1. DORIPENEM MONOHYDRATE [Suspect]
     Indication: FEBRILE NEUTROPENIA
     Route: 041
     Dates: start: 20110616, end: 20110621
  2. NEUTROGIN [Concomitant]
     Indication: ACUTE LYMPHOCYTIC LEUKAEMIA
     Route: 042
  3. IMMUNE GLOBULIN (HUMAN) [Suspect]
     Indication: FEBRILE NEUTROPENIA
     Route: 042

REACTIONS (1)
  - MUSCLE SPASMS [None]
